FAERS Safety Report 4750035-4 (Version None)
Quarter: 2005Q3

REPORT INFORMATION
  Report Type: 
  Country: None (occurrence: None)
  Receive Date: 20050822
  Receipt Date: 20050621
  Transmission Date: 20060218
  Serious: Yes (Death)
  Sender: FDA-Public Use
  Company Number: 200512510GDS

PATIENT
  Age: 49 Year
  Sex: Female
  Weight: 62 kg

DRUGS (17)
  1. TRASYLOL [Suspect]
     Indication: LIVER TRANSPLANT
     Dosage: SEE IMAGE
     Route: 042
     Dates: start: 20050105
  2. TRASYLOL [Suspect]
     Indication: LIVER TRANSPLANT
     Dosage: SEE IMAGE
     Route: 042
     Dates: start: 20050105
  3. GLYPRESSIN [Concomitant]
  4. INSULIN ACTRAPID NOVOLET [Concomitant]
  5. PROPRANOLOL HYDROCHLORIDE RETARD [Concomitant]
  6. PANTOPRAZOLE [Concomitant]
  7. LEVOTHYROXINE SODIUM [Concomitant]
  8. POTASSIUM CHLORIDE [Concomitant]
  9. ACIDUM FOLICUM [Concomitant]
  10. KONAKON [Concomitant]
  11. DOMPERIDONIUM [Concomitant]
  12. NORFLOXACINUM [Concomitant]
  13. MIDAZOLAM HCL [Concomitant]
  14. ATRACURIUM BESYLATE [Concomitant]
  15. SEVOFLURANE [Concomitant]
  16. GENTAMICIN [Concomitant]
  17. PENICILLIN [Concomitant]

REACTIONS (5)
  - COMPLICATIONS OF TRANSPLANTED LIVER [None]
  - DISSEMINATED INTRAVASCULAR COAGULATION [None]
  - HAEMODYNAMIC INSTABILITY [None]
  - PROCEDURAL COMPLICATION [None]
  - PROCEDURAL HYPOTENSION [None]
